FAERS Safety Report 4931758-0 (Version None)
Quarter: 2006Q1

REPORT INFORMATION
  Report Type: 
  Country: None (occurrence: None)
  Receive Date: 20060303
  Receipt Date: 20060221
  Transmission Date: 20060701
  Serious: Yes (Hospitalization)
  Sender: FDA-Public Use
  Company Number: PL-BRISTOL-MYERS SQUIBB COMPANY-13298823

PATIENT
  Age: 68 Year
  Sex: Female
  Weight: 76 kg

DRUGS (9)
  1. ENDOXAN [Suspect]
     Indication: CHRONIC LYMPHOCYTIC LEUKAEMIA
     Route: 042
     Dates: start: 20060210, end: 20060212
  2. FLUDARABINE PHOSPHATE [Suspect]
     Indication: CHRONIC LYMPHOCYTIC LEUKAEMIA
     Route: 042
     Dates: start: 20060210, end: 20060212
  3. RITUXIMAB [Suspect]
     Indication: CHRONIC LYMPHOCYTIC LEUKAEMIA
     Route: 042
     Dates: start: 20060210, end: 20060212
  4. L-THYROXINE [Concomitant]
     Dates: start: 20000101, end: 20060201
  5. AMLODIPINE [Concomitant]
     Dates: start: 20000101, end: 20060201
  6. ENALAPRIL MALEATE [Concomitant]
     Dates: start: 20010101, end: 20060214
  7. CIPROFLOXACIN [Concomitant]
     Dates: start: 20060214, end: 20060201
  8. ALLOPURINOL [Concomitant]
     Indication: PROPHYLACTIC CHEMOTHERAPY
     Dates: end: 20060210
  9. HYDRATION [Concomitant]
     Indication: PROPHYLACTIC CHEMOTHERAPY

REACTIONS (1)
  - TUMOUR LYSIS SYNDROME [None]
